FAERS Safety Report 10005378 (Version 2)
Quarter: 2014Q1

REPORT INFORMATION
  Report Type: Spontaneous
  Country: BR (occurrence: BR)
  Receive Date: 20140313
  Receipt Date: 20140313
  Transmission Date: 20141002
  Serious: Yes (Hospitalization)
  Sender: FDA-Public Use
  Company Number: BR-ROCHE-1231872

PATIENT
  Age: 20 Year
  Sex: Female

DRUGS (17)
  1. MABTHERA [Suspect]
     Indication: SLE ARTHRITIS
     Route: 065
     Dates: start: 20121108
  2. MABTHERA [Suspect]
     Route: 065
     Dates: start: 20121122
  3. MABTHERA [Suspect]
     Route: 065
     Dates: start: 20130528, end: 20130611
  4. MYCOPHENOLATE MOFETIL [Suspect]
     Indication: SLE ARTHRITIS
     Route: 065
     Dates: start: 20121108
  5. MYCOPHENOLATE MOFETIL [Suspect]
     Route: 065
     Dates: start: 20121122
  6. HYDROXYCHLOROQUINE [Concomitant]
     Indication: SYSTEMIC LUPUS ERYTHEMATOSUS
     Route: 048
     Dates: start: 201010
  7. PREDNISONE [Concomitant]
     Indication: IMMUNOSUPPRESSION
     Route: 065
  8. PREDNISONE [Concomitant]
     Route: 065
  9. DEXCHLORPHENIRAMINE [Concomitant]
     Indication: HYPERSENSITIVITY
     Route: 048
     Dates: start: 20130523, end: 20130529
  10. DIMENHYDRINATE/PYRIDOXINE HYDROCHLORIDE [Concomitant]
     Indication: NAUSEA
     Route: 042
     Dates: start: 20130523, end: 20130529
  11. DIPYRONE [Concomitant]
     Indication: PAIN
     Route: 042
     Dates: start: 20130523, end: 20130529
  12. HYDRALAZINE [Concomitant]
     Indication: HYPERTENSION
     Route: 042
     Dates: start: 20130523, end: 20130529
  13. HYDRALAZINE [Concomitant]
     Route: 048
     Dates: start: 20130523, end: 20130529
  14. METHYLDOPA [Concomitant]
     Indication: HYPERTENSION
     Route: 065
     Dates: end: 20130822
  15. NIFEDIPINE RETARD [Concomitant]
     Indication: HYPERTENSION
     Route: 048
  16. PARACETAMOL [Concomitant]
     Indication: PAIN
     Route: 048
     Dates: start: 20130523
  17. PINDOLOL [Concomitant]
     Indication: HYPERTENSION
     Route: 048
     Dates: end: 20130822

REACTIONS (2)
  - Maternal exposure during pregnancy [Unknown]
  - Abortion spontaneous [Recovered/Resolved]
